FAERS Safety Report 9858710 (Version 8)
Quarter: 2016Q1

REPORT INFORMATION
  Report Type: Report from Study
  Country: JP (occurrence: JP)
  Receive Date: 20140131
  Receipt Date: 20160216
  Transmission Date: 20160526
  Serious: Yes (Death, Other)
  Sender: FDA-Public Use
  Company Number: JP-PFIZER INC-2013327097

PATIENT
  Age: 61 Year
  Sex: Male
  Weight: 55 kg

DRUGS (8)
  1. XALKORI [Suspect]
     Active Substance: CRIZOTINIB
     Dosage: UNK
  2. XALKORI [Suspect]
     Active Substance: CRIZOTINIB
     Indication: NON-SMALL CELL LUNG CANCER
     Dosage: 250 MG, 2X/DAY
     Route: 048
     Dates: start: 20130723, end: 20130829
  3. ALLELOCK [Concomitant]
     Active Substance: OLOPATADINE HYDROCHLORIDE
     Dosage: 5 MG, 2X/DAY
     Route: 048
  4. MAGMITT [Concomitant]
     Active Substance: MAGNESIUM OXIDE
     Dosage: 500 MG, 3X/DAY
     Route: 048
  5. NAIXAN [Concomitant]
     Active Substance: NAPROXEN SODIUM
     Dosage: 200 MG, 3X/DAY
     Route: 048
     Dates: end: 20130930
  6. TAKEPRON [Suspect]
     Active Substance: LANSOPRAZOLE
     Dosage: 15 MG, 1X/DAY
     Route: 048
     Dates: end: 20130913
  7. NEW LECICARBON [Concomitant]
     Active Substance: SODIUM BICARBONATE\SODIUM PHOSPHATE, MONOBASIC
     Dosage: 5.2 G, AS NEEDED
  8. PROMAC D [Concomitant]
     Active Substance: NITROFURANTOIN
     Dosage: 75 MG, 2X/DAY
     Route: 048
     Dates: start: 20130807

REACTIONS (3)
  - Disease progression [Fatal]
  - Oesophageal candidiasis [Recovered/Resolved]
  - Non-small cell lung cancer [Fatal]

NARRATIVE: CASE EVENT DATE: 20130828
